FAERS Safety Report 23178785 (Version 1)
Quarter: 2023Q4

REPORT INFORMATION
  Report Type: Spontaneous
  Country: FR (occurrence: FR)
  Receive Date: 20231113
  Receipt Date: 20231113
  Transmission Date: 20240110
  Serious: Yes (Other)
  Sender: FDA-Public Use
  Company Number: None

PATIENT
  Age: 27 Year
  Sex: Male

DRUGS (7)
  1. DIAZEPAM [Suspect]
     Active Substance: DIAZEPAM
     Indication: Product used for unknown indication
     Route: 065
  2. OXYBATE [Suspect]
     Active Substance: OXYBATE
     Indication: Product used for unknown indication
     Route: 065
  3. MEPHEDRONE [Suspect]
     Active Substance: MEPHEDRONE
     Indication: Product used for unknown indication
     Route: 065
  4. 3-METHYLMETHCATHINONE [Suspect]
     Active Substance: 3-METHYLMETHCATHINONE
     Indication: Product used for unknown indication
     Route: 065
  5. 3-CHLOROMETHCATHINONE [Suspect]
     Active Substance: 3-CHLOROMETHCATHINONE
     Indication: Product used for unknown indication
     Route: 065
  6. COCAINE [Suspect]
     Active Substance: COCAINE
     Indication: Product used for unknown indication
     Route: 065
  7. ALCOHOL (DRINK) [Concomitant]
     Indication: Product used for unknown indication

REACTIONS (3)
  - Drug abuse [Unknown]
  - Mydriasis [Unknown]
  - Suicidal ideation [Unknown]

NARRATIVE: CASE EVENT DATE: 20230714
